FAERS Safety Report 5406122-0 (Version None)
Quarter: 2007Q3

REPORT INFORMATION
  Report Type: 
  Country: None (occurrence: None)
  Receive Date: 20070802
  Receipt Date: 20070802
  Transmission Date: 20080115
  Serious: Yes (Death, Hospitalization, Other)
  Sender: FDA-Public Use
  Company Number: None

PATIENT
  Age: 38 Year
  Sex: Male
  Weight: 77.1115 kg

DRUGS (13)
  1. FLEXERIL [Suspect]
  2. XANAX [Suspect]
  3. VALIUM [Suspect]
  4. NEURONTIN [Suspect]
  5. DESYREL [Suspect]
  6. RENAGEL [Suspect]
  7. PHOSLO [Suspect]
  8. REQUIP [Suspect]
  9. KLONOPIN [Suspect]
  10. OXYCONTIN [Suspect]
  11. AMBIEN [Suspect]
  12. LYRICA [Suspect]
  13. LOMOTIL [Suspect]

REACTIONS (6)
  - APALLIC SYNDROME [None]
  - GASTROINTESTINAL DISORDER [None]
  - NERVOUS SYSTEM DISORDER [None]
  - PARALYSIS [None]
  - RENAL DISORDER [None]
  - RESPIRATORY PARALYSIS [None]
